FAERS Safety Report 10173417 (Version 1)
Quarter: 2014Q2

REPORT INFORMATION
  Report Type: Spontaneous
  Country: US (occurrence: None)
  Receive Date: 20140415
  Receipt Date: 20140415
  Transmission Date: 20141212
  Serious: Yes (Hospitalization)
  Sender: FDA-Public Use
  Company Number: ALL1-2013-07441

PATIENT
  Age: 18 Year
  Sex: Female

DRUGS (2)
  1. LIALDA (MESALAZINE, MESALAMINE) TABLET [Suspect]
     Indication: COLITIS
     Dosage: 4.8 G (FOUR 1.2 G TABLETS) 1X/DAY:QD, ORAL
     Route: 048
     Dates: start: 20130928, end: 20131018
  2. PREDNISONE (PREDNISONE) [Concomitant]

REACTIONS (1)
  - Pancreatitis [None]
